FAERS Safety Report 6473109-9 (Version None)
Quarter: 2009Q4

REPORT INFORMATION
  Report Type: 
  Country: None (occurrence: None)
  Receive Date: 20091204
  Receipt Date: 20080624
  Transmission Date: 20100525
  Serious: Yes (Death, Other)
  Sender: FDA-Public Use
  Company Number: FR-ELI_LILLY_AND_COMPANY-FR200806002791

PATIENT
  Age: 47 Year
  Sex: Female
  Weight: 95 kg

DRUGS (8)
  1. XIGRIS [Suspect]
     Indication: MULTI-ORGAN FAILURE
     Dosage: 50 MG, UNKNOWN
     Route: 042
     Dates: start: 20080529, end: 20080530
  2. HYPNOVEL [Concomitant]
     Indication: SEDATION
     Dosage: 10 MG, EVERY HOUR
     Route: 042
     Dates: start: 20080528, end: 20080607
  3. FENTANYL [Concomitant]
     Indication: SEDATION
     Dosage: 200 GAMMA/HOUR
     Route: 042
     Dates: start: 20080528, end: 20080607
  4. NIMBEX [Concomitant]
     Indication: SEDATION
     Dosage: 300 MG, EVERY HOUR
     Route: 042
     Dates: start: 20080528, end: 20080607
  5. SANDOSTATIN [Concomitant]
     Indication: INTESTINAL FISTULA
     Dosage: 25 GAMMA/HOUR
     Route: 042
     Dates: start: 20080528, end: 20080607
  6. CIFLOX [Concomitant]
     Indication: ANTIBIOTIC THERAPY
     Dosage: 1200 MG, UNKNOWN
     Route: 042
     Dates: start: 20080528, end: 20080607
  7. VANCOMYCIN [Concomitant]
     Indication: ANTIBIOTIC THERAPY
     Dosage: 3 G, DAILY (1/D)
     Route: 042
     Dates: start: 20080528, end: 20080607
  8. TRIFLUCAN [Concomitant]
     Indication: ANTIBIOTIC THERAPY
     Dosage: 400 MG, UNKNOWN
     Route: 042
     Dates: start: 20080528, end: 20080602

REACTIONS (2)
  - HAEMORRHAGE [None]
  - MULTI-ORGAN FAILURE [None]
